FAERS Safety Report 13587508 (Version 1)
Quarter: 2017Q2

REPORT INFORMATION
  Report Type: Spontaneous
  Country: US (occurrence: US)
  Receive Date: 20170526
  Receipt Date: 20170526
  Transmission Date: 20170830
  Serious: Yes (Other)
  Sender: FDA-Public Use
  Company Number: None

PATIENT
  Age: 66 Year
  Sex: Male
  Weight: 105.3 kg

DRUGS (9)
  1. THEOPHYLLINE [Concomitant]
     Active Substance: THEOPHYLLINE ANHYDROUS
  2. MULTI VITAMIN [Concomitant]
     Active Substance: VITAMINS
  3. OMEPRAZOLE. [Concomitant]
     Active Substance: OMEPRAZOLE
  4. PROAIR INHALER [Suspect]
     Active Substance: ALBUTEROL SULFATE
     Indication: ASTHMA
     Dosage: 2 PUFF(S) EVERY 4 HOURS?
     Route: 048
  5. SINGULAIR [Concomitant]
     Active Substance: MONTELUKAST SODIUM
  6. B50 [Concomitant]
  7. KRILL OIL [Concomitant]
     Active Substance: DIETARY SUPPLEMENT
  8. SYMBIONTS [Concomitant]
  9. CRANBERRY SUPPLEMENT [Concomitant]

REACTIONS (2)
  - Device malfunction [None]
  - Drug ineffective [None]

NARRATIVE: CASE EVENT DATE: 20160516
